FAERS Safety Report 19407035 (Version 1)
Quarter: 2021Q2

REPORT INFORMATION
  Report Type: Spontaneous
  Country: CA (occurrence: CA)
  Receive Date: 20210611
  Receipt Date: 20210611
  Transmission Date: 20210717
  Serious: Yes (Life-Threatening)
  Sender: FDA-Public Use
  Company Number: CA-ALLERGAN-2122499US

PATIENT
  Sex: Female

DRUGS (1)
  1. BOTOX [Suspect]
     Active Substance: ONABOTULINUMTOXINA
     Indication: DYSTONIA
     Dosage: UNK, SINGLE

REACTIONS (9)
  - Aphasia [Unknown]
  - Nausea [Unknown]
  - Vomiting [Unknown]
  - Gastrointestinal tube insertion [Unknown]
  - Paraesthesia [Unknown]
  - Facial paralysis [Unknown]
  - Botulism [Unknown]
  - Dysphagia [Unknown]
  - Eyelid ptosis [Unknown]
